FAERS Safety Report 12167933 (Version 1)
Quarter: 2016Q1

REPORT INFORMATION
  Report Type: Spontaneous
  Country: US (occurrence: US)
  Receive Date: 20160310
  Receipt Date: 20160310
  Transmission Date: 20160526
  Serious: Yes (Other)
  Sender: FDA-Public Use
  Company Number: US-PFIZER INC-2016133912

PATIENT
  Age: 59 Year
  Sex: Female

DRUGS (2)
  1. IBRANCE [Suspect]
     Active Substance: PALBOCICLIB
     Indication: NEOPLASM MALIGNANT
     Dosage: 100 MG, CYCLIC (TAKE 1 CAPSULE BY MOUTH DAILY PARA 21 DAYS EVERY 28 DAYS)
     Route: 048
     Dates: start: 20151020
  2. BENADRYL [Concomitant]
     Active Substance: DIPHENHYDRAMINE HYDROCHLORIDE

REACTIONS (5)
  - Insomnia [Unknown]
  - Seizure [Unknown]
  - Activities of daily living impaired [Unknown]
  - Hypoaesthesia [Unknown]
  - Paraesthesia [Unknown]
